FAERS Safety Report 14057841 (Version 2)
Quarter: 2017Q4

REPORT INFORMATION
  Report Type: Spontaneous
  Country: AU (occurrence: AU)
  Receive Date: 20171006
  Receipt Date: 20171011
  Transmission Date: 20180321
  Serious: Yes (Death, Hospitalization)
  Sender: FDA-Public Use
  Company Number: AU-EISAI MEDICAL RESEARCH-EC-2017-031873

PATIENT
  Age: 57 Year
  Sex: Female

DRUGS (5)
  1. LENVIMA [Suspect]
     Active Substance: LENVATINIB
     Dosage: UNKNOWN
     Route: 048
     Dates: start: 201702, end: 201703
  2. GASTROSTOP [Concomitant]
     Indication: DIARRHOEA
     Dosage: UNKNOWN
     Route: 065
     Dates: start: 201701
  3. LENVIMA [Suspect]
     Active Substance: LENVATINIB
     Route: 048
     Dates: start: 201701, end: 201702
  4. LENVIMA [Suspect]
     Active Substance: LENVATINIB
     Indication: PRODUCT USED FOR UNKNOWN INDICATION
     Route: 048
     Dates: start: 20161206, end: 20161208
  5. LENVIMA [Suspect]
     Active Substance: LENVATINIB
     Route: 048
     Dates: start: 20161209, end: 201701

REACTIONS (6)
  - Fatigue [Unknown]
  - Decreased appetite [Unknown]
  - Diarrhoea [Unknown]
  - Sepsis [Fatal]
  - Nausea [Unknown]
  - Myalgia [Unknown]

NARRATIVE: CASE EVENT DATE: 20161209
